FAERS Safety Report 12309852 (Version 1)
Quarter: 2016Q2

REPORT INFORMATION
  Report Type: Spontaneous
  Country: US (occurrence: None)
  Receive Date: 20160426
  Receipt Date: 20160426
  Transmission Date: 20160815
  Serious: Yes (Hospitalization)
  Sender: FDA-Public Use
  Company Number: None

PATIENT
  Age: 53 Year
  Sex: Female

DRUGS (2)
  1. CAPECITABINE 150MG TEVA [Suspect]
     Active Substance: CAPECITABINE
     Indication: PRODUCT USED FOR UNKNOWN INDICATION
     Dosage: 2 TABLETS BY MOUTH WTIH 500MG TABLETS TWICE DAILY FOR 14 DAYS (TOTAL DOSE 1800MG TWICE DAILY
     Route: 048
     Dates: start: 20160331, end: 20160407
  2. CAPECITABINE 500MG TEVA [Suspect]
     Active Substance: CAPECITABINE
     Indication: PRODUCT USED FOR UNKNOWN INDICATION
     Dosage: 2 TABLETS BY MOUTH TWICE DAILY WITH 150MG TABS FOR 14 DAYS (TOTAL DOSE 1800MG TWICE DAILY)
     Route: 048
     Dates: start: 20160331, end: 20160407

REACTIONS (4)
  - Oropharyngeal pain [None]
  - Candida infection [None]
  - Pyrexia [None]
  - White blood cell count decreased [None]

NARRATIVE: CASE EVENT DATE: 20160407
